FAERS Safety Report 17628550 (Version 1)
Quarter: 2020Q2

REPORT INFORMATION
  Report Type: Spontaneous
  Country: US (occurrence: US)
  Receive Date: 20200406
  Receipt Date: 20200406
  Transmission Date: 20200713
  Serious: Yes (Hospitalization)
  Sender: FDA-Public Use
  Company Number: US-MSNLABS-2020MSNLIT00052

PATIENT
  Age: 7 Decade
  Sex: Male

DRUGS (8)
  1. IMMUNOGLOBULIN (IMMUNOGLOBULIN NOS) [Interacting]
     Active Substance: IMMUNE GLOBULIN NOS
     Indication: AUTOIMMUNE HEPATITIS
     Route: 042
  2. ASPIRIN. [Concomitant]
     Active Substance: ASPIRIN
     Indication: PRODUCT USED FOR UNKNOWN INDICATION
     Route: 065
  3. IMMUNOGLOBULIN (IMMUNOGLOBULIN NOS) [Interacting]
     Active Substance: IMMUNE GLOBULIN NOS
     Indication: IMMUNE-MEDIATED MYOSITIS
  4. ATORVASTATIN TABLETS 40MG [Suspect]
     Active Substance: ATORVASTATIN
     Indication: CEREBROVASCULAR ACCIDENT
     Route: 065
  5. PREDNISONE. [Interacting]
     Active Substance: PREDNISONE
     Indication: AUTOIMMUNE HEPATITIS
     Route: 048
  6. PREDNISONE. [Interacting]
     Active Substance: PREDNISONE
     Indication: IMMUNE-MEDIATED MYOSITIS
  7. METFORMIN [Concomitant]
     Active Substance: METFORMIN HYDROCHLORIDE
     Indication: PRODUCT USED FOR UNKNOWN INDICATION
     Route: 065
  8. LISINOPRIL. [Concomitant]
     Active Substance: LISINOPRIL
     Indication: PRODUCT USED FOR UNKNOWN INDICATION
     Route: 065

REACTIONS (2)
  - Immune-mediated myositis [Recovered/Resolved]
  - Autoimmune hepatitis [Recovered/Resolved]
